FAERS Safety Report 23664936 (Version 1)
Quarter: 2024Q1

REPORT INFORMATION
  Report Type: Spontaneous
  Country: CA (occurrence: CA)
  Receive Date: 20240322
  Receipt Date: 20240322
  Transmission Date: 20240410
  Serious: Yes (Hospitalization)
  Sender: FDA-Public Use
  Company Number: CA-SANDOZ-SDZ2024CA030807

PATIENT
  Age: 51 Year
  Sex: Female

DRUGS (5)
  1. CARBOPLATIN [Suspect]
     Active Substance: CARBOPLATIN
     Indication: Product used for unknown indication
     Dosage: UNK
     Route: 042
  2. DOCETAXEL [Suspect]
     Active Substance: DOCETAXEL\DOCETAXEL ANHYDROUS
     Indication: Product used for unknown indication
     Dosage: UNK
     Route: 065
  3. PERJETA [Suspect]
     Active Substance: PERTUZUMAB
     Indication: HER2 positive breast cancer
     Dosage: 420 MG, 1 EVERY 3 WEEKS
     Route: 042
  4. PERJETA [Suspect]
     Active Substance: PERTUZUMAB
     Dosage: 840 MG
     Route: 042
  5. PERINDOPRIL [Concomitant]
     Active Substance: PERINDOPRIL
     Indication: Product used for unknown indication
     Dosage: UNK, QD
     Route: 065

REACTIONS (3)
  - Haemoglobin decreased [Unknown]
  - Asthenia [Unknown]
  - Fatigue [Unknown]
